FAERS Safety Report 5138806-6 (Version None)
Quarter: 2006Q4

REPORT INFORMATION
  Report Type: 
  Country: None (occurrence: None)
  Receive Date: 20061024
  Receipt Date: 20061016
  Transmission Date: 20070319
  Serious: No
  Sender: FDA-Public Use
  Company Number: 430104K06USA

PATIENT
  Age: 53 Year
  Sex: Female
  Weight: 52.6173 kg

DRUGS (2)
  1. NOVANTRONE [Suspect]
     Indication: MULTIPLE SCLEROSIS
     Dates: start: 20050322
  2. COPAXONE [Suspect]

REACTIONS (3)
  - BLOOD GLUCOSE FLUCTUATION [None]
  - CONTUSION [None]
  - SYNCOPE [None]
